FAERS Safety Report 24276095 (Version 1)
Quarter: 2024Q3

REPORT INFORMATION
  Report Type: Spontaneous
  Country: US (occurrence: US)
  Receive Date: 20240903
  Receipt Date: 20240903
  Transmission Date: 20241016
  Serious: Yes (Life-Threatening, Hospitalization, Other)
  Sender: EPIC PHARM
  Company Number: US-EPICPHARMA-US-2024EPCLIT01041

PATIENT
  Age: 49 Year
  Sex: Female

DRUGS (4)
  1. OXYCODONE AND ACETAMINOPHEN [Suspect]
     Active Substance: ACETAMINOPHEN\OXYCODONE HYDROCHLORIDE
     Indication: Product used for unknown indication
     Route: 048
  2. OXYCONTIN [Suspect]
     Active Substance: OXYCODONE HYDROCHLORIDE
     Indication: Product used for unknown indication
     Dosage: 20 PILLS
     Route: 048
  3. ZOLPIDEM [Suspect]
     Active Substance: ZOLPIDEM TARTRATE
     Indication: Product used for unknown indication
     Dosage: SIX PILLS
     Route: 048
  4. HYDROCHLOROTHIAZIDE [Suspect]
     Active Substance: HYDROCHLOROTHIAZIDE
     Indication: Product used for unknown indication
     Dosage: TWO PILLS
     Route: 048

REACTIONS (16)
  - Multiple organ dysfunction syndrome [Unknown]
  - Disseminated intravascular coagulation [Unknown]
  - Acute respiratory failure [Unknown]
  - Septic shock [Unknown]
  - Retinal haemorrhage [Recovered/Resolved]
  - Choroidal infarction [Recovered/Resolved]
  - Troponin increased [Unknown]
  - International normalised ratio increased [Unknown]
  - Fibrin D dimer increased [Unknown]
  - Platelet count decreased [Unknown]
  - Blood fibrinogen decreased [Unknown]
  - Retinal depigmentation [Unknown]
  - Pneumonia aspiration [Unknown]
  - Tachycardia [Unknown]
  - Hypotension [Unknown]
  - Intentional overdose [Unknown]
